FAERS Safety Report 15756693 (Version 6)
Quarter: 2019Q4

REPORT INFORMATION
  Report Type: Report from Study
  Country: None (occurrence: BE)
  Receive Date: 20181224
  Receipt Date: 20191015
  Transmission Date: 20200122
  Serious: Yes (Other)
  Sender: FDA-Public Use
  Company Number: BE-ABBVIE-18S-013-2531178-00

PATIENT
  Sex: Male

DRUGS (19)
  1. SERLAIN [Concomitant]
     Active Substance: SERTRALINE HYDROCHLORIDE
     Indication: PRODUCT USED FOR UNKNOWN INDICATION
     Dosage: IN THE MORNING
  2. ASPIRIN. [Concomitant]
     Active Substance: ASPIRIN
     Dosage: UNKNOWN?IN THE MORNING
  3. AZILECT [Concomitant]
     Active Substance: RASAGILINE MESYLATE
     Indication: PRODUCT USED FOR UNKNOWN INDICATION
     Dosage: IN THE MORNING
  4. MIRAPEXIN [Concomitant]
     Active Substance: PRAMIPEXOLE
     Dosage: IN THE MORNING
  5. DUODOPA [Suspect]
     Active Substance: CARBIDOPA\LEVODOPA
     Dosage: MD= 4ML;CD= 3.3ML/HR DURING 16HRS;ED= 1.5ML
     Route: 050
     Dates: start: 20181012, end: 20181127
  6. DUODOPA [Suspect]
     Active Substance: CARBIDOPA\LEVODOPA
     Dosage: MD= 5ML CD= 3.8ML/HR DURING 16HRS ED= 1.5ML
     Route: 050
     Dates: start: 20190129, end: 20190418
  7. DUODOPA [Suspect]
     Active Substance: CARBIDOPA\LEVODOPA
     Dosage: MD=5ML, CD=4.2ML/HR DURING 16HRS, ED=1.5ML
     Route: 050
     Dates: start: 20191010
  8. DUODOPA [Suspect]
     Active Substance: CARBIDOPA\LEVODOPA
     Dosage: UNKNOWN DOSAGES
     Route: 050
     Dates: start: 20190418, end: 20191009
  9. ASAFLOW [Concomitant]
     Active Substance: ASPIRIN
     Indication: PRODUCT USED FOR UNKNOWN INDICATION
  10. DUODOPA [Suspect]
     Active Substance: CARBIDOPA\LEVODOPA
     Indication: PARKINSON^S DISEASE
     Dosage: MD= 9ML;CD= 4ML/HR DURING 16HRS;ED= 1.5ML
     Route: 050
     Dates: start: 20160418, end: 20161010
  11. DUODOPA [Suspect]
     Active Substance: CARBIDOPA\LEVODOPA
     Dosage: DOSES CONTINUOUSLY MONITORED AND ADAPTED
     Route: 050
     Dates: start: 20161010, end: 20181012
  12. MIRAPEXIN [Concomitant]
     Active Substance: PRAMIPEXOLE
     Indication: PARKINSON^S DISEASE
     Dosage: IN THE MORNING
  13. DUODOPA [Suspect]
     Active Substance: CARBIDOPA\LEVODOPA
     Dosage: MD=4ML?CD=3.5ML/HR DURING 16HRS?ED=1.5ML
     Route: 050
     Dates: start: 20181127, end: 20190101
  14. PROLOPA [Concomitant]
     Active Substance: BENSERAZIDE\LEVODOPA
     Indication: PRODUCT USED FOR UNKNOWN INDICATION
     Dosage: DISPERSIBLE ON DEMAND
  15. ASPIRIN. [Concomitant]
     Active Substance: ASPIRIN
     Indication: PRODUCT USED FOR UNKNOWN INDICATION
     Dosage: IN THE MORNING
  16. DUODOPA [Suspect]
     Active Substance: CARBIDOPA\LEVODOPA
     Dosage: MD= 4.5ML CD= 3.8ML/HR DURING 16HRS ED= 1.5ML
     Route: 050
     Dates: start: 20190101, end: 20190129
  17. MIRAPEXIN [Concomitant]
     Active Substance: PRAMIPEXOLE
     Dosage: IN THE MORNING
     Route: 048
  18. AZILECT [Concomitant]
     Active Substance: RASAGILINE MESYLATE
     Dosage: IN THE MORNING
  19. BELASERE [Concomitant]
     Indication: PRODUCT USED FOR UNKNOWN INDICATION

REACTIONS (19)
  - Device issue [Unknown]
  - Stoma site haemorrhage [Recovered/Resolved]
  - Mobility decreased [Not Recovered/Not Resolved]
  - Stoma site pain [Not Recovered/Not Resolved]
  - Freezing phenomenon [Unknown]
  - Stoma site hypergranulation [Recovered/Resolved]
  - Urinary tract infection [Unknown]
  - Medical device site erosion [Recovered/Resolved]
  - Stoma site discharge [Recovered/Resolved]
  - Induration [Recovered/Resolved]
  - Gastrointestinal stoma complication [Recovered/Resolved]
  - Stoma site inflammation [Recovered/Resolved]
  - Fistula [Recovered/Resolved]
  - Embedded device [Recovered/Resolved]
  - Motor dysfunction [Unknown]
  - Device kink [Unknown]
  - Stoma site erythema [Recovered/Resolved]
  - Stoma site ulcer [Recovered/Resolved]
  - Gait disturbance [Unknown]
